FAERS Safety Report 4835935-9 (Version None)
Quarter: 2005Q4

REPORT INFORMATION
  Report Type: 
  Country: None (occurrence: None)
  Receive Date: 20051118
  Receipt Date: 20051109
  Transmission Date: 20060501
  Serious: Yes (Other)
  Sender: FDA-Public Use
  Company Number: 235453K05USA

PATIENT
  Age: 40 Year
  Sex: Female

DRUGS (3)
  1. REBIF [Suspect]
     Indication: MULTIPLE SCLEROSIS
     Dosage: 8.8 MCG, 3 IN 1 WEEKS, SUBCUTANEOUS
     Route: 058
     Dates: start: 20051027
  2. ALEVE [Concomitant]
  3. ASPIRIN [Concomitant]

REACTIONS (3)
  - BLINDNESS TRANSIENT [None]
  - HYPOAESTHESIA [None]
  - MUSCLE SPASMS [None]
